FAERS Safety Report 4665652-X (Version None)
Quarter: 2005Q2

REPORT INFORMATION
  Report Type: 
  Country: None (occurrence: None)
  Receive Date: 20050518
  Receipt Date: 20050518
  Transmission Date: 20051028
  Serious: Yes (Hospitalization)
  Sender: FDA-Public Use
  Company Number: None

PATIENT
  Age: 51 Year
  Sex: Female
  Weight: 79.3795 kg

DRUGS (4)
  1. SUBUTEX [Suspect]
     Indication: DRUG DEPENDENCE
     Dosage: 8 MG  2X IN 1H SUBLINGUAL
     Route: 060
     Dates: start: 20050511, end: 20050511
  2. SUBUTEX [Suspect]
     Indication: DRUG DEPENDENCE
     Dosage: 8 MG  2X IN 1H SUBLINGUAL
     Route: 060
     Dates: start: 20050516, end: 20050517
  3. CLONAZEPAM [Concomitant]
  4. CIMETIDINE [Concomitant]

REACTIONS (6)
  - ANXIETY [None]
  - DIARRHOEA [None]
  - DRUG WITHDRAWAL SYNDROME [None]
  - GASTROINTESTINAL PAIN [None]
  - PAIN [None]
  - VOMITING [None]
